FAERS Safety Report 7376433-0 (Version None)
Quarter: 2011Q1

REPORT INFORMATION
  Report Type: 
  Country: None (occurrence: None)
  Receive Date: 20110325
  Receipt Date: 20110312
  Transmission Date: 20110831
  Serious: Yes (Death, Hospitalization)
  Sender: FDA-Public Use
  Company Number: CZ-JNJFOC-20110302940

PATIENT
  Age: 59 Year
  Sex: Female

DRUGS (13)
  1. CORTICOSTEROIDS [Concomitant]
  2. REMICADE [Suspect]
     Route: 042
  3. HYDROCHLOROTHIAZDE TAB [Concomitant]
  4. REMICADE [Suspect]
     Route: 042
  5. CALCIUM [Concomitant]
  6. SORBIFER [Concomitant]
  7. REMICADE [Suspect]
     Route: 042
  8. CONTROLOC [Concomitant]
  9. REMICADE [Suspect]
     Indication: COLITIS ULCERATIVE
     Route: 042
  10. ALENDRONATE SODIUM [Concomitant]
  11. ASACOL [Concomitant]
  12. VITAMIN D [Concomitant]
  13. PREDNISONE [Concomitant]

REACTIONS (5)
  - ENDOCARDITIS [None]
  - SEPSIS [None]
  - MULTI-ORGAN FAILURE [None]
  - BRONCHOPNEUMONIA [None]
  - CARDIAC FAILURE [None]
